FAERS Safety Report 8612796-3 (Version None)
Quarter: 2012Q3

REPORT INFORMATION
  Report Type: 
  Country: None (occurrence: None)
  Receive Date: 20120822
  Receipt Date: 20120216
  Transmission Date: 20120928
  Serious: No
  Sender: FDA-Public Use
  Company Number: US-ASTRAZENECA-2009SE25494

PATIENT
  Sex: Male

DRUGS (11)
  1. MUCOMYST [Concomitant]
     Indication: BRONCHIECTASIS
     Dosage: BID
     Dates: start: 20050101
  2. SYMBICORT [Suspect]
     Indication: CHRONIC OBSTRUCTIVE PULMONARY DISEASE
     Dosage: 160/4.5, 2 PUFFS BID
     Route: 055
     Dates: start: 20090301
  3. MUCOMYST [Concomitant]
     Indication: ASTHMA
     Dosage: BID
     Dates: start: 20050101
  4. FLUTICASONE PROPIONATE/SALMETEROL [Concomitant]
     Indication: CHRONIC OBSTRUCTIVE PULMONARY DISEASE
     Dates: end: 20090101
  5. XOPENEX [Concomitant]
     Indication: ASTHMA
     Dosage: 3-4 TIMES PER DAY
  6. LOPRESSOR [Concomitant]
     Indication: ARRHYTHMIA
  7. GENERIC IPRATROPIUM BROMIDE [Concomitant]
     Dosage: 3-4 TIMES A DAY
  8. FLUTICASONE PROPIONATE/SALMETEROL [Concomitant]
     Indication: ASTHMA
     Dates: end: 20090101
  9. SYMBICORT [Suspect]
     Indication: ASTHMA
     Dosage: 160/4.5, 2 PUFFS BID
     Route: 055
     Dates: start: 20090301
  10. XOPENEX [Concomitant]
     Indication: CHRONIC OBSTRUCTIVE PULMONARY DISEASE
     Dosage: 3-4 TIMES PER DAY
  11. MUCOMYST [Concomitant]
     Indication: CHRONIC OBSTRUCTIVE PULMONARY DISEASE
     Dosage: BID
     Dates: start: 20050101

REACTIONS (3)
  - ARRHYTHMIA [None]
  - PALPITATIONS [None]
  - DYSPHONIA [None]
